FAERS Safety Report 9690806 (Version 2)
Quarter: 2013Q4

REPORT INFORMATION
  Report Type: Report from Study
  Country: US (occurrence: US)
  Receive Date: 20131115
  Receipt Date: 20131209
  Transmission Date: 20140711
  Serious: Yes (Other)
  Sender: FDA-Public Use
  Company Number: US-AMGEN-USANI2013079494

PATIENT
  Age: 74 Year
  Sex: Female
  Weight: 80.8 kg

DRUGS (26)
  1. XGEVA [Suspect]
     Indication: BREAST CANCER
     Dosage: 120 MG, Q4WK
     Route: 058
     Dates: start: 201203, end: 201306
  2. DENOSUMAB [Suspect]
     Indication: PRODUCT USED FOR UNKNOWN INDICATION
     Dosage: UNK
     Route: 065
  3. FOSAMAX [Concomitant]
     Indication: OSTEOPOROSIS
     Dosage: UNK
     Dates: end: 201306
  4. ALPHA LIPOIC ACID [Concomitant]
     Route: 048
  5. CALCIUM CARBONATE AND VITAMIN D [Concomitant]
     Route: 048
  6. CYANOCOBALAMIN [Concomitant]
     Route: 048
  7. TRUSOPT [Concomitant]
     Dosage: 2 %, TID
     Route: 047
  8. LASIX                              /00032601/ [Concomitant]
     Dosage: 80 MG, BID
     Route: 048
  9. LORCET                             /00607101/ [Concomitant]
     Dosage: 5-500 MG, Q6H, AS NEEDED
     Route: 048
  10. ATARAX                             /00058401/ [Concomitant]
     Dosage: 25 MG, TID, AS NEEDED
     Route: 048
  11. XALATAN [Concomitant]
     Dosage: 0.005 %, NIGHTLY
     Route: 047
  12. FEMARA [Concomitant]
     Dosage: 2.5 MG, QD
     Route: 048
  13. MELATONIN [Concomitant]
     Dosage: AS INSTRUCTED
  14. REGLAN                             /00041901/ [Concomitant]
     Dosage: 10 MG, QID
     Route: 048
  15. LOPRESSOR [Concomitant]
     Dosage: 50 MG, BID
     Route: 048
  16. OMEPRAZOLE [Concomitant]
     Route: 048
  17. PERCOCET                           /00446701/ [Concomitant]
     Dosage: 5-325 MG, Q4H, AS NEEDED
     Route: 048
  18. K-DUR [Concomitant]
     Dosage: UNK UNK, BID
     Route: 048
  19. PRAVACHOL [Concomitant]
     Dosage: 20 MG, QD
     Route: 048
  20. PROBIOTICS [Concomitant]
     Dosage: UNK UNK, QD
     Route: 048
  21. COMPAZINE                          /00013302/ [Concomitant]
     Dosage: 10 MG, Q6H, AS NEEDED
     Route: 048
  22. TOBREX [Concomitant]
     Dosage: 1.4 %, PLACE IN BOTH EYES
     Route: 047
  23. ULTRAM                             /00599202/ [Concomitant]
     Dosage: 50 MG, Q6H, AS NEEDED
     Route: 048
  24. COUMADIN                           /00014802/ [Concomitant]
     Dosage: 1 MG, QD, AS DIRECTED
     Route: 048
  25. AROMATASE INHIBITORS [Concomitant]
  26. HERCEPTIN [Concomitant]

REACTIONS (1)
  - Osteonecrosis of jaw [Not Recovered/Not Resolved]
